FAERS Safety Report 12548382 (Version 1)
Quarter: 2016Q3

REPORT INFORMATION
  Report Type: Spontaneous
  Country: US (occurrence: None)
  Receive Date: 20160711
  Receipt Date: 20160711
  Transmission Date: 20161109
  Serious: Yes (Other)
  Sender: FDA-Public Use
  Company Number: None

PATIENT
  Age: 28 Year
  Sex: Female
  Weight: 65.77 kg

DRUGS (2)
  1. NEXPLANON [Suspect]
     Active Substance: ETONOGESTREL
     Dates: start: 20160527
  2. KEPPRA [Concomitant]
     Active Substance: LEVETIRACETAM

REACTIONS (9)
  - Depressed mood [None]
  - Nausea [None]
  - Nervousness [None]
  - Anxiety [None]
  - Abdominal pain upper [None]
  - Dizziness [None]
  - Mood swings [None]
  - Weight increased [None]
  - Decreased appetite [None]

NARRATIVE: CASE EVENT DATE: 20160601
